FAERS Safety Report 11578208 (Version 1)
Quarter: 2015Q3

REPORT INFORMATION
  Report Type: Spontaneous
  Country: DK (occurrence: IT)
  Receive Date: 20150930
  Receipt Date: 20150930
  Transmission Date: 20151125
  Serious: Yes (Disabling)
  Sender: FDA-Public Use
  Company Number: IT-FRI-1000079819

PATIENT
  Age: 77 Year
  Sex: Male

DRUGS (11)
  1. NETILDEX CORILLO / NETILMICIN AND DEXAMETHASONE [Concomitant]
     Indication: PRODUCT USED FOR UNKNOWN INDICATION
     Route: 061
  2. GANFORT COLLIRIO / BIMATOPROST AND TIMOLOL [Concomitant]
     Indication: PRODUCT USED FOR UNKNOWN INDICATION
     Route: 061
  3. CITALOPRAM [Suspect]
     Active Substance: CITALOPRAM HYDROBROMIDE
     Indication: ANXIETY
     Dosage: 1/2 TABLET PER DAY
     Route: 048
  4. CITALOPRAM [Suspect]
     Active Substance: CITALOPRAM HYDROBROMIDE
     Route: 048
     Dates: start: 20150904
  5. LANSOPRAZOLE. [Concomitant]
     Active Substance: LANSOPRAZOLE
     Indication: PRODUCT USED FOR UNKNOWN INDICATION
     Route: 065
  6. DIAMOX / ACETAZOLAMIDE [Concomitant]
     Indication: GLAUCOMA
     Dosage: 1/2 TABLET
     Route: 065
  7. CITALOPRAM [Suspect]
     Active Substance: CITALOPRAM HYDROBROMIDE
     Indication: PRESYNCOPE
     Dosage: IN THE MORNING
     Route: 048
  8. TENORETIC / ATENOLOL AND CHLORTHALIDONE [Concomitant]
     Indication: HYPERTENSION
     Dosage: 1/2 TABLET
     Route: 065
  9. FIBRASE / PENTOSAN POLYSULFATE [Concomitant]
     Indication: PRODUCT USED FOR UNKNOWN INDICATION
     Dosage: 3 DF
     Route: 048
  10. COSOPT COLLIRIO / DORZOLAMIDE AND TIMOLOL [Concomitant]
     Indication: PRODUCT USED FOR UNKNOWN INDICATION
     Route: 061
  11. PILOCARPINA COLLIRIO/ PILOCARPINE [Concomitant]
     Indication: PRODUCT USED FOR UNKNOWN INDICATION
     Route: 061

REACTIONS (6)
  - Panic attack [Recovered/Resolved]
  - Intraocular pressure increased [Unknown]
  - Trigeminal neuralgia [Recovering/Resolving]
  - Blindness [Recovering/Resolving]
  - Eye haemorrhage [Recovering/Resolving]
  - Product use issue [Unknown]

NARRATIVE: CASE EVENT DATE: 2007
